FAERS Safety Report 10570519 (Version 1)
Quarter: 2014Q4

REPORT INFORMATION
  Report Type: Spontaneous
  Country: US (occurrence: US)
  Receive Date: 20141107
  Receipt Date: 20141107
  Transmission Date: 20150529
  Serious: No
  Sender: FDA-Public Use
  Company Number: US-009507513-1411USA000781

PATIENT
  Sex: Female

DRUGS (24)
  1. HYDROCHLOROTHIAZIDE. [Concomitant]
     Active Substance: HYDROCHLOROTHIAZIDE
     Indication: FLUID RETENTION
     Dosage: 25 MG, QD ( 1 TAB IF NEEDED IN EVENING)
  2. FOLIC ACID. [Concomitant]
     Active Substance: FOLIC ACID
     Indication: MALABSORPTION
     Dosage: 3 MG, QD
  3. PERCOCET [Concomitant]
     Active Substance: ACETAMINOPHEN\OXYCODONE HYDROCHLORIDE
     Indication: PAIN
     Dosage: 10-325 MG PRN TAB  TID/AS NEEDED
     Route: 048
  4. CARBIDOPA (+) LEVODOPA [Concomitant]
     Active Substance: CARBIDOPA\LEVODOPA
     Indication: RESTLESS LEGS SYNDROME
     Dosage: 25/100MG TAB AT  BEDTIME
     Route: 048
  5. PROVIGIL [Concomitant]
     Active Substance: MODAFINIL
     Indication: SLEEP APNOEA SYNDROME
     Dosage: 200 MG, UNK, 1ST TAB AT 8 A.M IF NEEDED AND A 2ND TAB IF NEEDED AT 3 P.M.
  6. FENTANYL. [Concomitant]
     Active Substance: FENTANYL
     Indication: PAIN
     Dosage: 25 MICROGRAM, Q3D
  7. MINOCYCLINE [Concomitant]
     Active Substance: MINOCYCLINE\MINOCYCLINE HYDROCHLORIDE
     Indication: PEMPHIGOID
     Dosage: 100 MG, BID
  8. ALBUTEROL. [Concomitant]
     Active Substance: ALBUTEROL
     Indication: ASTHMA
     Dosage: 2 PUFFS/4 TIMES A DAY OR AS NEEDED
     Route: 055
  9. SINGULAIR [Suspect]
     Active Substance: MONTELUKAST SODIUM
     Dosage: UNK
  10. DIGOXIN. [Concomitant]
     Active Substance: DIGOXIN
     Indication: SUPRAVENTRICULAR TACHYCARDIA
     Dosage: 0.25 MG, QD
  11. LYRICA [Concomitant]
     Active Substance: PREGABALIN
     Indication: NEUROPATHY PERIPHERAL
     Dosage: 300 MG, BID
  12. ADVAIR HFA [Concomitant]
     Active Substance: FLUTICASONE PROPIONATE\SALMETEROL XINAFOATE
     Indication: ASTHMA
     Dosage: 250/50, BID
  13. BLOOD, PLASMA [Concomitant]
     Indication: HAEMORRHAGIC DISORDER
     Dosage: UNK, TRANFUSIONS AS NEEDED
  14. LOPID [Concomitant]
     Active Substance: GEMFIBROZIL
     Indication: BLOOD TRIGLYCERIDES INCREASED
     Dosage: 600 MG, BID, BEFORE BREAKFAST AND DINNER
  15. METHOTREXATE [Concomitant]
     Active Substance: METHOTREXATE
     Indication: ARTHRITIS
     Dosage: 15 MG, ONCE A WEEK (SUNDAY)
  16. NOVOLOG [Concomitant]
     Active Substance: INSULIN ASPART
     Indication: TYPE 2 DIABETES MELLITUS
     Dosage: UNK, 10 UNITS, SUBQ BREAKFAST, LUNCH, DINNER AND ADD SLIDING SCALE AND CARBS PER MEAL
     Route: 058
  17. CYANOCOBALAMIN. [Concomitant]
     Active Substance: CYANOCOBALAMIN
     Indication: MALABSORPTION
     Dosage: UNK, 1ST AND 15TH OF EACH MONTH
  18. PHYTONADIONE. [Concomitant]
     Active Substance: PHYTONADIONE
     Indication: HAEMORRHAGIC DISORDER
     Dosage: UNK, 10 MG/ML INJECTED ON 1ST AND 15TH OF EACH MONTH
     Route: 058
  19. NEURONTIN [Concomitant]
     Active Substance: GABAPENTIN
     Indication: NEUROPATHY PERIPHERAL
     Dosage: 300 MG, BID
  20. DIGOXIN. [Concomitant]
     Active Substance: DIGOXIN
     Indication: ARRHYTHMIA
  21. LISINOPRIL. [Concomitant]
     Active Substance: LISINOPRIL
     Indication: DIABETIC COMPLICATION
     Dosage: 5 MG, QD
  22. LANTUS [Concomitant]
     Active Substance: INSULIN GLARGINE
     Indication: TYPE 2 DIABETES MELLITUS
     Dosage: 60 UNITS P.M.
  23. VERAPAMIL [Concomitant]
     Active Substance: VERAPAMIL HYDROCHLORIDE
     Indication: CARDIAC DISORDER
     Dosage: 120 MG, QAM
  24. VERAPAMIL [Concomitant]
     Active Substance: VERAPAMIL HYDROCHLORIDE
     Dosage: 120 MG, QPM

REACTIONS (1)
  - Drug hypersensitivity [Unknown]
